FAERS Safety Report 16347676 (Version 1)
Quarter: 2019Q3

REPORT INFORMATION
  Report Type: Spontaneous
  Country: US (occurrence: US)
  Receive Date: 20190522
  Receipt Date: 20190522
  Transmission Date: 20191004
  Serious: Yes (Hospitalization)
  Sender: FDA-Public Use
  Company Number: None

PATIENT
  Age: 65 Year
  Sex: Female
  Weight: 88 kg

DRUGS (1)
  1. JARDIANCE [Suspect]
     Active Substance: EMPAGLIFLOZIN

REACTIONS (9)
  - Fatigue [None]
  - Sepsis [None]
  - Bandaemia [None]
  - Leukocytosis [None]
  - Diabetic ketoacidosis [None]
  - Nausea [None]
  - Polyuria [None]
  - Hypersomnia [None]
  - Polydipsia [None]

NARRATIVE: CASE EVENT DATE: 20190520
